FAERS Safety Report 24411205 (Version 1)
Quarter: 2024Q4

REPORT INFORMATION
  Report Type: Spontaneous
  Country: US (occurrence: US)
  Receive Date: 20241008
  Receipt Date: 20241008
  Transmission Date: 20250115
  Serious: No
  Sender: FERRING
  Company Number: US-FERRINGPH-2024FE05168

PATIENT
  Age: 67 Year
  Sex: Male

DRUGS (1)
  1. ADSTILADRIN [Suspect]
     Active Substance: NADOFARAGENE FIRADENOVEC-VNCG
     Indication: Bladder cancer
     Dosage: 75 ML
     Route: 065
     Dates: start: 20240422

REACTIONS (5)
  - Pollakiuria [Recovered/Resolved]
  - Pain [Recovered/Resolved]
  - Bladder spasm [Recovered/Resolved]
  - Micturition urgency [Recovered/Resolved]
  - Haematuria [Recovered/Resolved]

NARRATIVE: CASE EVENT DATE: 20240422
